FAERS Safety Report 17460394 (Version 1)
Quarter: 2020Q1

REPORT INFORMATION
  Report Type: Spontaneous
  Country: CN (occurrence: CN)
  Receive Date: 20200226
  Receipt Date: 20200226
  Transmission Date: 20200409
  Serious: Yes (Hospitalization, Other)
  Sender: FDA-Public Use
  Company Number: CN-SUN PHARMACEUTICAL INDUSTRIES LTD-2020R1-237692

PATIENT
  Age: 49 Year
  Sex: Male

DRUGS (3)
  1. BENSERAZIDE-LEVODOPA [Suspect]
     Active Substance: BENSERAZIDE\LEVODOPA
     Indication: PARKINSON^S DISEASE
     Dosage: 750 MILLIGRAM, DAILY
  2. BENSERAZIDE-LEVODOPA [Suspect]
     Active Substance: BENSERAZIDE\LEVODOPA
     Dosage: 500 MILLIGRAM, DAILY
     Route: 065
  3. PRAMIPEXOLE. [Suspect]
     Active Substance: PRAMIPEXOLE
     Indication: PARKINSON^S DISEASE
     Dosage: 1.5 MILLIGRAM, DAILY
     Route: 065

REACTIONS (4)
  - DiGeorge^s syndrome [Unknown]
  - Hypocalcaemia [Unknown]
  - Muscle contractions involuntary [Unknown]
  - Muscle twitching [Unknown]
